FAERS Safety Report 17743007 (Version 1)
Quarter: 2020Q2

REPORT INFORMATION
  Report Type: Spontaneous
  Country: US (occurrence: US)
  Receive Date: 20200504
  Receipt Date: 20200504
  Transmission Date: 20200714
  Serious: No
  Sender: FDA-Public Use
  Company Number: US-INTERSECT ENT, INC.-2083479

PATIENT
  Age: 43 Year
  Sex: Female

DRUGS (1)
  1. SINUVA [Suspect]
     Active Substance: MOMETASONE FUROATE
     Route: 006
     Dates: start: 20191231

REACTIONS (1)
  - Rhinalgia [Unknown]

NARRATIVE: CASE EVENT DATE: 20200103
